FAERS Safety Report 8816765 (Version 1)
Quarter: 2012Q4

REPORT INFORMATION
  Report Type: Spontaneous
  Country: US (occurrence: None)
  Receive Date: 20121001
  Receipt Date: 20121001
  Transmission Date: 20130627
  Serious: Yes (Other)
  Sender: FDA-Public Use
  Company Number: FK201202826

PATIENT
  Age: 81 Year

DRUGS (1)
  1. DEXAMETHASONE [Suspect]
     Indication: MULTIPLE MYELOMA
     Dosage: dexamethasone injection (manufacturer unknown)

REACTIONS (4)
  - Constipation [None]
  - Thrombocytopenia [None]
  - Asthenia [None]
  - Pneumonia [None]
